FAERS Safety Report 12882143 (Version 1)
Quarter: 2016Q4

REPORT INFORMATION
  Report Type: Spontaneous
  Country: FR (occurrence: FR)
  Receive Date: 20161025
  Receipt Date: 20161025
  Transmission Date: 20170207
  Serious: Yes (Death, Other)
  Sender: FDA-Public Use
  Company Number: FR-ABBVIE-16P-056-1760374-00

PATIENT
  Age: 73 Year
  Sex: Male

DRUGS (1)
  1. DUODOPA [Suspect]
     Active Substance: CARBIDOPA\LEVODOPA
     Indication: PARKINSON^S DISEASE
     Route: 050
     Dates: start: 20161003

REACTIONS (3)
  - Syncope [Unknown]
  - Malaise [Fatal]
  - Hallucination [Unknown]

NARRATIVE: CASE EVENT DATE: 20161003
